FAERS Safety Report 4480137-1 (Version None)
Quarter: 2004Q4

REPORT INFORMATION
  Report Type: 
  Country: None (occurrence: None)
  Receive Date: 20041018
  Receipt Date: 20040929
  Transmission Date: 20050328
  Serious: Yes (Other)
  Sender: FDA-Public Use
  Company Number: 6010528

PATIENT
  Age: 50 Year
  Sex: Male

DRUGS (1)
  1. DIABEX (TABLET) (METFORMIN HYDROCHLORIDE) [Suspect]
     Dosage: (1 GM); ORAL
     Route: 048

REACTIONS (2)
  - HYPERSENSITIVITY [None]
  - PHARMACEUTICAL PRODUCT COMPLAINT [None]
